FAERS Safety Report 4506796-2 (Version None)
Quarter: 2004Q4

REPORT INFORMATION
  Report Type: 
  Country: None (occurrence: None)
  Receive Date: 20041122
  Receipt Date: 20040913
  Transmission Date: 20050328
  Serious: Yes (Other)
  Sender: FDA-Public Use
  Company Number: US-GLAXOSMITHKLINE-A0525449A

PATIENT
  Age: 82 Year
  Sex: Female
  Weight: 78.6 kg

DRUGS (8)
  1. ADVAIR [Suspect]
     Indication: ASTHMA
     Route: 055
     Dates: start: 20040719, end: 20040920
  2. FOSAMAX [Concomitant]
  3. EVISTA [Concomitant]
  4. LEVOXYL [Concomitant]
  5. CELEBREX [Concomitant]
  6. ZYRTEC [Concomitant]
  7. MULTIVITAMIN [Concomitant]
  8. EYE DROPS [Concomitant]

REACTIONS (3)
  - ATROPHY [None]
  - HOARSENESS [None]
  - LARYNGEAL DISORDER [None]
